FAERS Safety Report 11060077 (Version 1)
Quarter: 2015Q2

REPORT INFORMATION
  Report Type: Spontaneous
  Country: BR (occurrence: BR)
  Receive Date: 20150423
  Receipt Date: 20150423
  Transmission Date: 20150821
  Serious: Yes (Hospitalization)
  Sender: FDA-Public Use
  Company Number: BR-DSJP-DSJ-2014-129020

PATIENT

DRUGS (3)
  1. OLMESARTAN MEDOXOMIL; HYDROCHLOROTHIAZIDE [Suspect]
     Active Substance: HYDROCHLOROTHIAZIDE\OLMESARTAN MEDOXOMIL
     Dosage: UNK UNK, QD
     Route: 048
     Dates: start: 201305, end: 201308
  2. OLMESARTAN MEDOXOMIL; HYDROCHLOROTHIAZIDE [Suspect]
     Active Substance: HYDROCHLOROTHIAZIDE\OLMESARTAN MEDOXOMIL
     Dosage: 40/12.5MG, QD
     Route: 048
     Dates: start: 20130729, end: 201308
  3. OLMESARTAN MEDOXOMIL; HYDROCHLOROTHIAZIDE [Suspect]
     Active Substance: HYDROCHLOROTHIAZIDE\OLMESARTAN MEDOXOMIL
     Indication: HYPERTENSION
     Dosage: 40/12.5MG, QD
     Route: 048
     Dates: start: 2011, end: 20141102

REACTIONS (4)
  - Nephrolithiasis [Recovered/Resolved]
  - Urinary retention [Recovered/Resolved]
  - Intentional product misuse [Unknown]
  - Renal atrophy [Not Recovered/Not Resolved]

NARRATIVE: CASE EVENT DATE: 201408
